FAERS Safety Report 15076553 (Version 1)
Quarter: 2018Q2

REPORT INFORMATION
  Report Type: Report from Study
  Country: US (occurrence: US)
  Receive Date: 20180627
  Receipt Date: 20180627
  Transmission Date: 20180711
  Serious: Yes (Hospitalization)
  Sender: FDA-Public Use
  Company Number: US-ALEXION PHARMACEUTICALS INC.-A201808202

PATIENT
  Sex: Female

DRUGS (2)
  1. STRENSIQ [Suspect]
     Active Substance: ASFOTASE ALFA
     Indication: HYPOPHOSPHATASIA
     Dosage: 100 MG, UNK
     Route: 065
     Dates: start: 20161026
  2. STRENSIQ [Suspect]
     Active Substance: ASFOTASE ALFA
     Dosage: 110 MG, UNK
     Route: 065
     Dates: start: 201801

REACTIONS (1)
  - Substance abuse [Recovered/Resolved with Sequelae]

NARRATIVE: CASE EVENT DATE: 20180107
